FAERS Safety Report 6336178-2 (Version None)
Quarter: 2009Q3

REPORT INFORMATION
  Report Type: 
  Country: None (occurrence: None)
  Receive Date: 20090831
  Receipt Date: 20090831
  Transmission Date: 20100115
  Serious: Yes (Hospitalization)
  Sender: FDA-Public Use
  Company Number: None

PATIENT
  Sex: Male
  Weight: 79 kg

DRUGS (10)
  1. DOCETAXEL [Suspect]
     Indication: PROSTATE CANCER
     Dosage: 75MG/M2, Q3W, IV
     Route: 042
     Dates: start: 20090423, end: 20090806
  2. PREDNISONE [Concomitant]
  3. CALCIUM [Concomitant]
  4. IBUPROFEN [Concomitant]
  5. LEVOTHYROXINE [Concomitant]
  6. DOCUSATE [Concomitant]
  7. OMEPRAZOLE [Concomitant]
  8. AMIODERONE [Concomitant]
  9. SENOKOT [Concomitant]
  10. COMPAZINE [Concomitant]

REACTIONS (6)
  - DEHYDRATION [None]
  - FEELING ABNORMAL [None]
  - HYPOTENSION [None]
  - NAUSEA [None]
  - PNEUMONIA [None]
  - VOMITING [None]
